FAERS Safety Report 16889780 (Version 1)
Quarter: 2019Q4

REPORT INFORMATION
  Report Type: Spontaneous
  Country: CA (occurrence: CA)
  Receive Date: 20191007
  Receipt Date: 20191007
  Transmission Date: 20200122
  Serious: Yes (Other)
  Sender: FDA-Public Use
  Company Number: CA-TEVA-2019-CA-1116653

PATIENT
  Age: 49 Year
  Sex: Female

DRUGS (13)
  1. EPIRUBICIN HYDROCHLORIDE INJECTION [Suspect]
     Active Substance: EPIRUBICIN HYDROCHLORIDE
     Indication: BREAST CANCER
     Route: 065
  2. XGEVA SINGLE-USE VIAL.FOR S.C. USE ONLY.PRESERVATIVE-FREE. [Concomitant]
     Indication: PROPHYLAXIS
     Route: 058
  3. TAMOXIFEN [Concomitant]
     Active Substance: TAMOXIFEN
     Indication: BREAST CANCER
  4. CALCIUM [Concomitant]
     Active Substance: CALCIUM
  5. XGEVA SINGLE-USE VIAL.FOR S.C. USE ONLY.PRESERVATIVE-FREE. [Concomitant]
     Indication: BREAST CANCER
     Route: 058
  6. DENOSUMAB [Concomitant]
     Active Substance: DENOSUMAB
  7. DENOSUMAB [Concomitant]
     Active Substance: DENOSUMAB
  8. DENOSUMAB [Concomitant]
     Active Substance: DENOSUMAB
  9. DOCETAXEL. [Suspect]
     Active Substance: DOCETAXEL
     Indication: BREAST CANCER
     Route: 065
  10. CITALOPRAM [Concomitant]
     Active Substance: CITALOPRAM HYDROBROMIDE
  11. VITAMIN D3 [Concomitant]
     Active Substance: CHOLECALCIFEROL
  12. FLUOROURACIL. [Suspect]
     Active Substance: FLUOROURACIL
     Indication: BREAST CANCER
     Route: 065
  13. CYCLOPHOSPHAMIDE. [Suspect]
     Active Substance: CYCLOPHOSPHAMIDE
     Indication: BREAST CANCER
     Route: 065

REACTIONS (1)
  - Menopause [Unknown]
